FAERS Safety Report 10646513 (Version 1)
Quarter: 2014Q4

REPORT INFORMATION
  Report Type: Spontaneous
  Country: FR (occurrence: FR)
  Receive Date: 20141211
  Receipt Date: 20141211
  Transmission Date: 20150529
  Serious: Yes (Hospitalization)
  Sender: FDA-Public Use
  Company Number: FR-FRI-1000072979

PATIENT
  Age: 42 Year
  Sex: Male

DRUGS (5)
  1. REMERON [Suspect]
     Active Substance: MIRTAZAPINE
     Route: 048
     Dates: start: 201401, end: 20140915
  2. RISPERDAL [Suspect]
     Active Substance: RISPERIDONE
     Route: 048
     Dates: start: 201401, end: 20140915
  3. TRIBEKSOL [Suspect]
     Active Substance: CYANOCOBALAMIN\PYRIDOXINE HYDROCHLORIDE\THIAMINE
     Dates: start: 201408, end: 20140915
  4. CAMPRAL [Suspect]
     Active Substance: ACAMPROSATE CALCIUM
     Route: 048
     Dates: start: 201401, end: 20140915
  5. MOXIFOR [Suspect]
     Active Substance: MOXIFLOXACIN HYDROCHLORIDE
     Route: 048
     Dates: start: 20140701, end: 20140915

REACTIONS (3)
  - Pleural effusion [Recovered/Resolved]
  - Pulmonary eosinophilia [Recovered/Resolved]
  - Pleurisy [Recovered/Resolved]

NARRATIVE: CASE EVENT DATE: 201408
